FAERS Safety Report 24364189 (Version 1)
Quarter: 2024Q3

REPORT INFORMATION
  Report Type: Report from Study
  Country: ZA (occurrence: ZA)
  Receive Date: 20240925
  Receipt Date: 20240925
  Transmission Date: 20241017
  Serious: Yes (Other)
  Sender: ABBVIE
  Company Number: ZA-ABBOTT-2024A-1388244

PATIENT
  Age: 67 Year
  Sex: Female

DRUGS (28)
  1. CREON [Suspect]
     Active Substance: PANCRELIPASE AMYLASE\PANCRELIPASE LIPASE\PANCRELIPASE PROTEASE
     Indication: Pancreatic failure
     Dosage: 150 MG TAKE ONE CAPSULE TWELVE HOURLY
     Route: 048
  2. GLUCOPHAGE XR [Concomitant]
     Active Substance: METFORMIN HYDROCHLORIDE
     Indication: Diabetes mellitus
     Dosage: 500 MG TAKE ONE TABLET AT NIGHT
     Route: 048
  3. LIBRAX [Concomitant]
     Active Substance: CHLORDIAZEPOXIDE HYDROCHLORIDE\CLIDINIUM BROMIDE
     Indication: Abdominal pain upper
     Dosage: TAKE ONE TABLET THREE TIMES A DAY
     Route: 048
  4. ESCITALOPRAM [Concomitant]
     Active Substance: ESCITALOPRAM OXALATE
     Indication: Depression
     Dosage: 5 MG TAKE ONE TABLET IN THE MORNING
     Route: 048
  5. PREGABALIN [Concomitant]
     Active Substance: PREGABALIN
     Indication: Epilepsy
     Dosage: 25 MG TAKE ONE CAPSULE AT NIGHT
     Route: 048
  6. ILEVRO [Concomitant]
     Active Substance: NEPAFENAC
     Indication: Product used for unknown indication
     Dosage: 3 MG INSTIL ONE DROP ONCE PER DAY INTO BOTH EYES
     Route: 047
  7. LEVOTHYROXINE [Concomitant]
     Active Substance: LEVOTHYROXINE\LEVOTHYROXINE SODIUM
     Indication: Hypothyroidism
     Dosage: 200 MCG TAKE ONE TABLET IN THE MORNING
     Route: 048
  8. Spiractin [Concomitant]
     Indication: Hypertension
     Dosage: 25 MG TAKE ONE TABLET ONCE PER DAY
     Route: 048
  9. LOPERAMIDE [Concomitant]
     Active Substance: LOPERAMIDE
     Indication: Product used for unknown indication
     Dosage: 2 MG TAKE TWO TABLETS AT ONCE
     Route: 048
  10. FUROSEMIDE [Concomitant]
     Active Substance: FUROSEMIDE
     Indication: Hypertension
     Dosage: 40 MG TAKE HALF A TABLET ONCE PER DAY
     Route: 048
  11. LORNOXICAM [Concomitant]
     Active Substance: LORNOXICAM
     Indication: Product used for unknown indication
     Dosage: 8 MG TAKE ONE TABLET TWICE A DAY
     Route: 048
  12. Serdep [Concomitant]
     Indication: Mental disorder
     Dosage: 50 MG TAKE ONE TABLET ONCE PER DAY
     Route: 048
  13. FLUOXETINE HYDROCHLORIDE [Concomitant]
     Active Substance: FLUOXETINE HYDROCHLORIDE
     Indication: Depression
     Dosage: 20 MG TAKE ONE CAPSULE ONCE PER DAY
     Route: 048
  14. MUPIROCIN [Concomitant]
     Active Substance: MUPIROCIN
     Indication: Product used for unknown indication
     Dosage: 20 MG APPLY TO THE AFFECTED AREAS TWICE A DAY
     Route: 061
  15. NEUROBION [Concomitant]
     Active Substance: CYANOCOBALAMIN\PYRIDOXINE\THIAMINE
     Indication: Product used for unknown indication
     Dosage: TAKE ONE TABLET DAILY
     Route: 048
  16. ROSUVASTATIN [Concomitant]
     Active Substance: ROSUVASTATIN\ROSUVASTATIN CALCIUM
     Indication: Blood cholesterol
     Dosage: 10 MG TAKE ONE TABLET AT NIGHT
     Route: 048
  17. DORMONOCT [Concomitant]
     Active Substance: LOPRAZOLAM
     Indication: Sleep disorder
     Dosage: 2 MG TAKE ONE TABLET AT NIGHT
     Route: 048
  18. DAFIRO [Concomitant]
     Active Substance: AMLODIPINE\VALSARTAN
     Indication: Hypertension
     Dosage: 5/160 MG TAKE ONE TABLET ONCE PER DAY
     Route: 048
  19. ROBAXIN [Concomitant]
     Active Substance: METHOCARBAMOL
     Indication: Product used for unknown indication
     Dosage: 750 MG TAKE TWO TABLETS THREE TIMES A DAY
     Route: 048
  20. VOLTAREN [Concomitant]
     Active Substance: DICLOFENAC SODIUM
     Indication: Product used for unknown indication
     Dosage: 20 MG APPLY TO THE AFFECTED AREAS TWICE A DAY; VOLTAREN EMUGEL 12H
     Route: 061
  21. KANTREXIL [Concomitant]
     Indication: Product used for unknown indication
     Dosage: TAKE ONE TABLET THREE TIMES A DAY
     Route: 048
  22. FLURBIPROFEN [Concomitant]
     Active Substance: FLURBIPROFEN
     Indication: Product used for unknown indication
     Dosage: 40 MG APPLY TO THE AFFECTED AREAS ONCE
     Route: 061
  23. Valduo [Concomitant]
     Indication: Cardiac disorder
     Dosage: 5/160 MG TAKE ONE TABLET ONCE PER DAY
     Route: 048
  24. METFORMIN HYDROCHLORIDE [Concomitant]
     Active Substance: METFORMIN HYDROCHLORIDE
     Indication: Diabetes mellitus
     Dosage: 500 MG TAKE ONE TABLET OF AT NIGHT
     Route: 048
  25. Stopayne [Concomitant]
     Indication: Osteoarthritis
     Dosage: TAKE TWO TABLETS TWICE A DAY
     Route: 048
  26. CYCLOBENZAPRINE HYDROCHLORIDE [Concomitant]
     Active Substance: CYCLOBENZAPRINE HYDROCHLORIDE
     Indication: Product used for unknown indication
     Dosage: 15 MG TAKE ONE CAPSULE AT 17H00
     Route: 048
  27. Adco sporozole [Concomitant]
     Indication: Product used for unknown indication
     Dosage: 100 MG TAKE ONE CAPSULE TWELVE HOURLY
     Route: 048
  28. VIMOVO [Concomitant]
     Active Substance: ESOMEPRAZOLE MAGNESIUM\NAPROXEN
     Indication: Pain
     Dosage: 500/20 MG TAKE ONE TABLET TWICE A DAY
     Route: 048

REACTIONS (1)
  - Pelvic fracture [Unknown]
